FAERS Safety Report 21216700 (Version 1)
Quarter: 2022Q3

REPORT INFORMATION
  Report Type: Spontaneous
  Country: US (occurrence: None)
  Receive Date: 20220815
  Receipt Date: 20220815
  Transmission Date: 20221027
  Serious: Yes (Other)
  Sender: FDA-Public Use
  Company Number: None

PATIENT
  Age: 30 Year
  Sex: Female
  Weight: 63.9 kg

DRUGS (1)
  1. CITROMA [Suspect]
     Active Substance: MAGNESIUM CITRATE
     Indication: Constipation
     Dosage: OTHER QUANTITY : 10 OUNCE(S);?FREQUENCY : AS NEEDED;?
     Route: 048
     Dates: start: 20220708, end: 20220709

REACTIONS (3)
  - Vomiting [None]
  - Syncope [None]
  - Dizziness [None]

NARRATIVE: CASE EVENT DATE: 20220709
